FAERS Safety Report 7439354-0 (Version None)
Quarter: 2011Q2

REPORT INFORMATION
  Report Type: 
  Country: None (occurrence: None)
  Receive Date: 20110427
  Receipt Date: 20110329
  Transmission Date: 20111010
  Serious: Yes (Hospitalization)
  Sender: FDA-Public Use
  Company Number: US-BAYER-201039722NA

PATIENT
  Age: 47 Year
  Sex: Female
  Weight: 68.027 kg

DRUGS (5)
  1. WARFARIN [Concomitant]
  2. YAZ [Suspect]
     Indication: CONTRACEPTION
  3. XANAX [Concomitant]
     Indication: ANXIETY
  4. YASMIN [Suspect]
     Indication: CONTRACEPTION
     Route: 048
     Dates: end: 20060501
  5. ZOCOR [Concomitant]
     Indication: BLOOD CHOLESTEROL INCREASED

REACTIONS (1)
  - DEEP VEIN THROMBOSIS [None]
